FAERS Safety Report 9122969 (Version 1)
Quarter: 2013Q1

REPORT INFORMATION
  Report Type: Spontaneous
  Country: US (occurrence: US)
  Receive Date: 20130227
  Receipt Date: 20130227
  Transmission Date: 20140127
  Serious: No
  Sender: FDA-Public Use
  Company Number: US-GLAXOSMITHKLINE-A1003235A

PATIENT
  Age: 61 Year
  Sex: Female

DRUGS (3)
  1. VALACYCLOVIR [Suspect]
     Indication: GENITAL HERPES
     Dosage: 500MG PER DAY
     Route: 048
     Dates: start: 20120527
  2. LEVOTHYROXINE [Concomitant]
  3. ALKA SELTZER PLUS [Concomitant]

REACTIONS (2)
  - Abdominal pain upper [Recovered/Resolved]
  - Pain [Unknown]
